FAERS Safety Report 20323929 (Version 2)
Quarter: 2022Q1

REPORT INFORMATION
  Report Type: Report from Study
  Country: US (occurrence: US)
  Receive Date: 20220111
  Receipt Date: 20220119
  Transmission Date: 20220423
  Serious: Yes (Hospitalization, Other)
  Sender: FDA-Public Use
  Company Number: US-PFIZER INC-202101883626

PATIENT
  Age: 3 Year
  Sex: Male
  Weight: 12.4 kg

DRUGS (12)
  1. TEMSIROLIMUS [Suspect]
     Active Substance: TEMSIROLIMUS
     Indication: Embryonal rhabdomyosarcoma
     Dosage: OVER 30-60 MINUTES ON DAYS 1, 8, AND 15
     Route: 042
     Dates: start: 20180621, end: 20180802
  2. IRINOTECAN HYDROCHLORIDE [Suspect]
     Active Substance: IRINOTECAN HYDROCHLORIDE
     Indication: Embryonal rhabdomyosarcoma
     Dosage: OVER 90 MINUTES ON DAYS 1-5 OF CYCLES 2 AND 4
     Route: 042
  3. VINCRISTINE SULFATE [Suspect]
     Active Substance: VINCRISTINE SULFATE
     Indication: Embryonal rhabdomyosarcoma
     Dosage: OVER 1 MINUTE OR INFUSION VIA MINIBAG ON DAYS 1, 8, AND 15
     Route: 042
     Dates: start: 20180621
  4. CYCLOPHOSPHAMIDE [Suspect]
     Active Substance: CYCLOPHOSPHAMIDE
     Indication: Embryonal rhabdomyosarcoma
     Dosage: OVER 60 MINUTES ON DAY 1 OF CYCLES 1 AND 3
     Route: 042
     Dates: start: 20180621
  5. DACTINOMYCIN [Suspect]
     Active Substance: DACTINOMYCIN
     Indication: Embryonal rhabdomyosarcoma
     Dosage: OVER 1-5 MINUTES ON DAY 1 OF CYCLES 1 AND 3
     Route: 042
     Dates: start: 20180621
  6. BACTRIM [Concomitant]
     Active Substance: SULFAMETHOXAZOLE\TRIMETHOPRIM
  7. CEFEPIME [Concomitant]
     Active Substance: CEFEPIME HYDROCHLORIDE
  8. CAPHOSOL [CALCIUM CHLORIDE;SODIUM PHOSPHATE DIBASIC;SODIUM PHOSPHATE M [Concomitant]
  9. HYDROXYZINE [Concomitant]
     Active Substance: HYDROXYZINE HYDROCHLORIDE
  10. DIBASIC POTASSIUM PHOSPHATE [Concomitant]
     Active Substance: DIBASIC POTASSIUM PHOSPHATE
  11. RISPERDAL [Concomitant]
     Active Substance: RISPERIDONE
  12. ZOFRAN [Concomitant]
     Active Substance: ONDANSETRON HYDROCHLORIDE

REACTIONS (3)
  - Febrile neutropenia [Unknown]
  - Neutrophil count decreased [Unknown]
  - Platelet count decreased [Recovered/Resolved]

NARRATIVE: CASE EVENT DATE: 20180810
